FAERS Safety Report 7989119-6 (Version None)
Quarter: 2011Q4

REPORT INFORMATION
  Report Type: 
  Country: None (occurrence: None)
  Receive Date: 20111219
  Receipt Date: 20111209
  Transmission Date: 20120403
  Serious: Yes (Other)
  Sender: FDA-Public Use
  Company Number: US-US-EMD SERONO, INC.-7101089

PATIENT
  Sex: Female

DRUGS (1)
  1. REBIF [Suspect]
     Indication: PRODUCT USED FOR UNKNOWN INDICATION
     Route: 058
     Dates: start: 20040602

REACTIONS (11)
  - CATARACT OPERATION [None]
  - KNEE ARTHROPLASTY [None]
  - ROTATOR CUFF SYNDROME [None]
  - CYST [None]
  - FALL [None]
  - EXOSTOSIS [None]
  - EAR INJURY [None]
  - ASTHMA [None]
  - GAIT DISTURBANCE [None]
  - UPPER LIMB FRACTURE [None]
  - RESTLESS LEGS SYNDROME [None]
